FAERS Safety Report 4437422-9 (Version None)
Quarter: 2004Q3

REPORT INFORMATION
  Report Type: 
  Country: None (occurrence: None)
  Receive Date: 20040830
  Receipt Date: 20040830
  Transmission Date: 20050211
  Serious: Yes (Hospitalization, Other)
  Sender: FDA-Public Use
  Company Number: None

PATIENT

DRUGS (6)
  1. LISINOPRIL [Suspect]
  2. HYDROCHLOROTHIAZIDE [Concomitant]
  3. PENTOXIFYLLINE [Concomitant]
  4. VERAPAMIL [Concomitant]
  5. ALPRAZOLAM [Concomitant]
  6. GLYBURIDE [Concomitant]

REACTIONS (1)
  - HYPERKALAEMIA [None]
